FAERS Safety Report 7632110-X (Version None)
Quarter: 2011Q3

REPORT INFORMATION
  Report Type: 
  Country: None (occurrence: None)
  Receive Date: 20110725
  Receipt Date: 20110725
  Transmission Date: 20111222
  Serious: Yes (Death, Life-Threatening, Hospitalization, Disabling, Congenital Anomaly, Other)
  Sender: FDA-Public Use
  Company Number: None

PATIENT
  Sex: Female
  Weight: 74.842 kg

DRUGS (1)
  1. MONISTAT 3 COMBINATION PACK [Suspect]
     Indication: VULVOVAGINAL MYCOTIC INFECTION
     Dosage: -1- PREFILLED APPLICATION
     Route: 067
     Dates: start: 20101231, end: 20111231

REACTIONS (2)
  - APPLICATION SITE PRURITUS [None]
  - APPLICATION SITE PAIN [None]
